FAERS Safety Report 20081376 (Version 1)
Quarter: 2021Q4

REPORT INFORMATION
  Report Type: Spontaneous
  Country: IT (occurrence: IT)
  Receive Date: 20211117
  Receipt Date: 20211117
  Transmission Date: 20220303
  Serious: Yes (Other)
  Sender: FDA-Public Use
  Company Number: None

PATIENT
  Age: 78 Year
  Sex: Male
  Weight: 54 kg

DRUGS (2)
  1. GEMCITABINE HYDROCHLORIDE [Suspect]
     Active Substance: GEMCITABINE HYDROCHLORIDE
     Indication: Bladder transitional cell carcinoma
     Route: 042
     Dates: start: 20210823, end: 20210902
  2. CISPLATIN [Concomitant]
     Active Substance: CISPLATIN
     Indication: Bladder transitional cell carcinoma
     Route: 042
     Dates: start: 20210823, end: 20210823

REACTIONS (2)
  - Pyrexia [Recovering/Resolving]
  - Restlessness [Recovering/Resolving]

NARRATIVE: CASE EVENT DATE: 20210823
